FAERS Safety Report 5967694-0 (Version None)
Quarter: 2008Q4

REPORT INFORMATION
  Report Type: 
  Country: None (occurrence: None)
  Receive Date: 20081126
  Receipt Date: 20081114
  Transmission Date: 20090506
  Serious: Yes (Other)
  Sender: FDA-Public Use
  Company Number: BR-RANBAXY-2008R5-19513

PATIENT

DRUGS (3)
  1. CEPHALEXIN [Suspect]
     Indication: EAR INFECTION
     Dosage: 500 MG, QID
     Route: 048
     Dates: start: 20081113, end: 20081114
  2. PREDNISONE TAB [Concomitant]
  3. CILOXAN [Concomitant]

REACTIONS (4)
  - ERYTHEMA [None]
  - EYE SWELLING [None]
  - SKIN DISORDER [None]
  - SWELLING FACE [None]
